FAERS Safety Report 14630416 (Version 4)
Quarter: 2018Q2

REPORT INFORMATION
  Report Type: Spontaneous
  Country: JP (occurrence: JP)
  Receive Date: 20180313
  Receipt Date: 20180422
  Transmission Date: 20180711
  Serious: Yes (Hospitalization, Other)
  Sender: FDA-Public Use
  Company Number: JP-APOTEX-2018AP008330

PATIENT
  Sex: Female

DRUGS (4)
  1. PAXIL [Suspect]
     Active Substance: PAROXETINE HYDROCHLORIDE
     Dosage: 40 MG, 1D
     Route: 048
  2. SULPIRIDE [Concomitant]
     Active Substance: SULPIRIDE
     Dosage: 50 MG, 1D
     Route: 065
  3. SULPIRIDE [Concomitant]
     Active Substance: SULPIRIDE
     Dosage: UNK
     Route: 065
  4. PAXIL [Suspect]
     Active Substance: PAROXETINE HYDROCHLORIDE
     Dosage: 20 MG, 1D
     Route: 048

REACTIONS (8)
  - Parkinsonism [Recovering/Resolving]
  - Tardive dyskinesia [Recovering/Resolving]
  - Tremor [Recovering/Resolving]
  - Clinomania [Recovering/Resolving]
  - Depressive symptom [Recovering/Resolving]
  - Decreased appetite [Recovering/Resolving]
  - Insomnia [Recovering/Resolving]
  - Muscle rigidity [Recovering/Resolving]
